FAERS Safety Report 23166616 (Version 1)
Quarter: 2023Q4

REPORT INFORMATION
  Report Type: Report from Study
  Country: IL (occurrence: IL)
  Receive Date: 20231109
  Receipt Date: 20231109
  Transmission Date: 20240110
  Serious: Yes (Death, Hospitalization, Other)
  Sender: FDA-Public Use
  Company Number: IL-GILEAD-2023-0649443

PATIENT
  Sex: Female

DRUGS (1)
  1. SACITUZUMAB GOVITECAN-HZIY [Suspect]
     Active Substance: SACITUZUMAB GOVITECAN-HZIY
     Indication: Product used for unknown indication
     Dosage: 850 MG, DAYS 1 AND 8 EVERY 21 DAYS
     Route: 065
     Dates: start: 20231008, end: 20231015

REACTIONS (6)
  - Death [Fatal]
  - Pancytopenia [Unknown]
  - Diverticulitis [Unknown]
  - Sepsis [Unknown]
  - Neutropenia [Unknown]
  - Febrile neutropenia [Unknown]
